FAERS Safety Report 23686586 (Version 1)
Quarter: 2024Q1

REPORT INFORMATION
  Report Type: Spontaneous
  Country: CA (occurrence: CA)
  Receive Date: 20240329
  Receipt Date: 20240329
  Transmission Date: 20240410
  Serious: Yes (Other)
  Sender: FDA-Public Use
  Company Number: None

PATIENT
  Age: 47 Year
  Sex: Male

DRUGS (8)
  1. METHOTREXATE [Suspect]
     Active Substance: METHOTREXATE
     Indication: Ankylosing spondylitis
     Route: 065
  2. CEFUROXIME AXETIL [Concomitant]
     Active Substance: CEFUROXIME AXETIL
     Route: 048
  3. CELEBREX [Concomitant]
     Active Substance: CELECOXIB
  4. FOLIC ACID [Concomitant]
     Active Substance: FOLIC ACID
     Route: 048
  5. NAPROXEN [Concomitant]
     Active Substance: NAPROXEN
     Dosage: 2 EVERY 1 DAYS
  6. PREDNISONE [Concomitant]
     Active Substance: PREDNISONE
     Route: 048
  7. RABEPRAZOLE SODIUM [Concomitant]
     Active Substance: RABEPRAZOLE SODIUM
     Dosage: EVERY 1 DAYS
     Route: 048
  8. METHOTREXATE [Suspect]
     Active Substance: METHOTREXATE
     Indication: Ankylosing spondylitis
     Dosage: 1 EVERY 1 WEEKS
     Route: 048

REACTIONS (7)
  - Ankylosing spondylitis [Unknown]
  - Drug ineffective for unapproved indication [Unknown]
  - Enthesopathy [Unknown]
  - Joint effusion [Unknown]
  - Off label use [Unknown]
  - Sacroiliitis [Unknown]
  - Spondyloarthropathy [Unknown]
